FAERS Safety Report 6615703-8 (Version None)
Quarter: 2010Q1

REPORT INFORMATION
  Report Type: 
  Country: None (occurrence: None)
  Receive Date: 20100305
  Receipt Date: 20100302
  Transmission Date: 20100710
  Serious: Yes (Death)
  Sender: FDA-Public Use
  Company Number: CH-ROCHE-688116

PATIENT
  Sex: Male

DRUGS (2)
  1. AVASTIN [Suspect]
     Route: 042
  2. FOLFIRI REGIMEN [Concomitant]

REACTIONS (2)
  - COLORECTAL CANCER [None]
  - MALIGNANT NEOPLASM PROGRESSION [None]
